FAERS Safety Report 17916403 (Version 2)
Quarter: 2020Q4

REPORT INFORMATION
  Report Type: Spontaneous
  Country: DE (occurrence: DE)
  Receive Date: 20200619
  Receipt Date: 20201013
  Transmission Date: 20210113
  Serious: Yes (Hospitalization)
  Sender: FDA-Public Use
  Company Number: DE-B.I. PHARMACEUTICALS,INC./RIDGEFIELD-2020-BI-030927

PATIENT
  Age: 70 Year
  Sex: Male
  Weight: 106 kg

DRUGS (8)
  1. TOUJEO [Concomitant]
     Active Substance: INSULIN GLARGINE
     Indication: DIABETES MELLITUS
     Route: 058
     Dates: start: 20161204
  2. JARDIANCE [Suspect]
     Active Substance: EMPAGLIFLOZIN
     Indication: TYPE 2 DIABETES MELLITUS
     Route: 048
     Dates: start: 20180919, end: 20200130
  3. KOMBOGLYZE [Concomitant]
     Active Substance: METFORMIN HYDROCHLORIDE\SAXAGLIPTIN
     Indication: DIABETES MELLITUS
     Dosage: (1-0-1)?1 DOSE UNIT UNK
     Route: 048
     Dates: start: 20150408, end: 20200821
  4. ILTRIA [Concomitant]
     Indication: CORONARY ARTERY DISEASE
     Dosage: UNIT DOSE: 1 UNIT UNKNOWN?1 IN 1 DAY
     Route: 048
     Dates: start: 20181018
  5. ILTRIA [Concomitant]
     Indication: LIPID METABOLISM DISORDER
  6. ILTRIA [Concomitant]
     Indication: HYPERTENSION
  7. METOPROLOL. [Concomitant]
     Active Substance: METOPROLOL
     Indication: HYPERTENSION
     Dosage: (0.5 - 0 - 0.5)??0.5 DOSE UNIT UNKNOWN
     Route: 048
     Dates: start: 20061227, end: 20200821
  8. TORASEMID [Concomitant]
     Active Substance: TORSEMIDE
     Indication: HYPERTENSION
     Dosage: IF REQUIRED FREQUENCY:
     Route: 048
     Dates: start: 20061227

REACTIONS (4)
  - Pollakiuria [Unknown]
  - Calculus bladder [Recovered/Resolved]
  - Calculus urinary [Recovered/Resolved]
  - Nephrolithiasis [Recovered/Resolved]

NARRATIVE: CASE EVENT DATE: 20200128
